FAERS Safety Report 17499681 (Version 1)
Quarter: 2020Q1

REPORT INFORMATION
  Report Type: Spontaneous
  Country: US (occurrence: US)
  Receive Date: 20200304
  Receipt Date: 20200304
  Transmission Date: 20200409
  Serious: No
  Sender: FDA-Public Use
  Company Number: US-ASTRAZENECA-2020SE21382

PATIENT
  Sex: Female
  Weight: 80.3 kg

DRUGS (2)
  1. FASLODEX [Suspect]
     Active Substance: FULVESTRANT
     Indication: BREAST CANCER METASTATIC
     Dosage: MONTHLY
     Route: 030
  2. AMLODIPINE [Concomitant]
     Active Substance: AMLODIPINE BESYLATE
     Indication: HYPERTENSION

REACTIONS (7)
  - Urine odour abnormal [Not Recovered/Not Resolved]
  - Feeling hot [Recovering/Resolving]
  - Injection site mass [Recovering/Resolving]
  - Injection site pain [Recovering/Resolving]
  - Pruritus [Recovering/Resolving]
  - Pain in extremity [Recovered/Resolved]
  - Bowel movement irregularity [Not Recovered/Not Resolved]
